FAERS Safety Report 22396914 (Version 2)
Quarter: 2023Q2

REPORT INFORMATION
  Report Type: Report from Study
  Country: KR (occurrence: KR)
  Receive Date: 20230601
  Receipt Date: 20230619
  Transmission Date: 20230721
  Serious: Yes (Hospitalization)
  Sender: FDA-Public Use
  Company Number: KR-JNJFOC-20230553518

PATIENT
  Age: 56 Year
  Sex: Male
  Weight: 50 kg

DRUGS (9)
  1. TECLISTAMAB [Suspect]
     Active Substance: TECLISTAMAB
     Indication: Plasma cell myeloma
     Route: 058
     Dates: start: 20221019, end: 20230502
  2. FOLIC ACID [Concomitant]
     Active Substance: FOLIC ACID
     Indication: Anaemia
     Route: 048
     Dates: start: 20210113, end: 20230517
  3. LYRICA [Concomitant]
     Active Substance: PREGABALIN
     Indication: Peripheral sensory neuropathy
     Route: 048
     Dates: start: 20210120, end: 20230516
  4. AROBEST [Concomitant]
     Indication: Abdominal pain
     Route: 048
     Dates: start: 20210706, end: 20230518
  5. TYLENOL [Concomitant]
     Active Substance: ACETAMINOPHEN
     Indication: Premedication
     Route: 048
     Dates: start: 20221019
  6. DEXAMETHASONE [Concomitant]
     Active Substance: DEXAMETHASONE
     Indication: Premedication
     Route: 048
     Dates: start: 20221019
  7. DEXAMETHASONE [Concomitant]
     Active Substance: DEXAMETHASONE
     Route: 048
     Dates: start: 20221019
  8. PENIRAMIN [Concomitant]
     Indication: Premedication
     Route: 042
     Dates: start: 20221019
  9. PENIRAMIN [Concomitant]
     Route: 048
     Dates: start: 20221019

REACTIONS (3)
  - Atypical pneumonia [Recovered/Resolved]
  - COVID-19 pneumonia [Recovered/Resolved]
  - Dyspnoea exertional [Recovered/Resolved]

NARRATIVE: CASE EVENT DATE: 20230131
